FAERS Safety Report 9675319 (Version 1)
Quarter: 2013Q4

REPORT INFORMATION
  Report Type: Spontaneous
  Country: IT (occurrence: US)
  Receive Date: 20131107
  Receipt Date: 20131107
  Transmission Date: 20140711
  Serious: No
  Sender: FDA-Public Use
  Company Number: IT-PFIZER INC-2013314581

PATIENT
  Age: 17 Year
  Sex: Female

DRUGS (1)
  1. ADVIL [Suspect]
     Indication: PYREXIA
     Dosage: 200 MG, DAILY
     Route: 048
     Dates: start: 20131030, end: 20131030

REACTIONS (1)
  - Lip swelling [Not Recovered/Not Resolved]
